FAERS Safety Report 5871266-6 (Version None)
Quarter: 2008Q3

REPORT INFORMATION
  Report Type: 
  Country: None (occurrence: None)
  Receive Date: 20080905
  Receipt Date: 20080828
  Transmission Date: 20090109
  Serious: Yes (Hospitalization)
  Sender: FDA-Public Use
  Company Number: FR-JNJFOC-20080805521

PATIENT
  Sex: Male

DRUGS (10)
  1. HALDOL [Suspect]
     Indication: DRUG USE FOR UNKNOWN INDICATION
     Route: 048
     Dates: start: 20080530, end: 20080617
  2. GALANTAMINE HYDROBROMIDE [Suspect]
     Indication: DEMENTIA ALZHEIMER'S TYPE
     Route: 048
  3. ATHYMIL [Suspect]
     Indication: DRUG USE FOR UNKNOWN INDICATION
     Route: 048
     Dates: start: 20080430, end: 20080617
  4. TERCIAN [Suspect]
     Indication: DRUG USE FOR UNKNOWN INDICATION
     Route: 048
     Dates: start: 20080527, end: 20080617
  5. ELISOR [Suspect]
     Indication: TYPE 2 DIABETES MELLITUS
     Route: 048
  6. AMLOR [Concomitant]
  7. DETENSIEL [Concomitant]
  8. THERALENE [Concomitant]
  9. GLUCOPHAGE [Concomitant]
  10. TIAPRIDAL [Concomitant]

REACTIONS (1)
  - AGRANULOCYTOSIS [None]
